FAERS Safety Report 8926650 (Version 1)
Quarter: 2012Q4

REPORT INFORMATION
  Report Type: 
  Country: DE (occurrence: DE)
  Receive Date: 20121127
  Receipt Date: 20121127
  Transmission Date: 20130627
  Serious: Yes (Hospitalization, Other)
  Sender: FDA-Public Use
  Company Number: GXKR2012DE003587

PATIENT
  Sex: Male

DRUGS (2)
  1. CITALOPRAM [Suspect]
     Dosage: Maternal dose: 60 mg/day
     Route: 064
  2. FEMIBION [Concomitant]
     Dosage: Maternal dose: 0.4 mg/day (gw 0-21)
     Route: 064

REACTIONS (5)
  - Developmental delay [Recovered/Resolved]
  - Neonatal respiratory distress syndrome [Recovered/Resolved]
  - Hypoglycaemia neonatal [Recovered/Resolved]
  - Agitation neonatal [Recovered/Resolved]
  - Foetal exposure during pregnancy [Unknown]
